FAERS Safety Report 14030015 (Version 1)
Quarter: 2017Q4

REPORT INFORMATION
  Report Type: Spontaneous
  Country: AU (occurrence: AU)
  Receive Date: 20171002
  Receipt Date: 20171002
  Transmission Date: 20180321
  Serious: Yes (Disabling, Other)
  Sender: FDA-Public Use
  Company Number: AU-APOTEX-2017AP019448

PATIENT
  Age: 45 Year
  Sex: Male

DRUGS (4)
  1. VORICONAZOLE APOTEX [Suspect]
     Active Substance: VORICONAZOLE
     Indication: SCEDOSPORIUM INFECTION
     Dosage: UNK
     Route: 048
  2. TACROLIMUS APOTEX [Suspect]
     Active Substance: TACROLIMUS
     Indication: IMMUNOSUPPRESSION
     Dosage: UNK
     Route: 065
  3. PREDNISONE. [Suspect]
     Active Substance: PREDNISONE
     Indication: IMMUNOSUPPRESSION
     Dosage: UNK
     Route: 065
  4. MYCOPHENOLATE [Suspect]
     Active Substance: MYCOPHENOLIC ACID
     Indication: IMMUNOSUPPRESSION
     Dosage: UNK
     Route: 065

REACTIONS (5)
  - Osteomyelitis [Recovered/Resolved with Sequelae]
  - Scedosporium infection [Recovered/Resolved with Sequelae]
  - Drug interaction [Unknown]
  - Staphylococcal infection [Recovered/Resolved with Sequelae]
  - Polyomavirus-associated nephropathy [Unknown]
